FAERS Safety Report 17266912 (Version 1)
Quarter: 2020Q1

REPORT INFORMATION
  Report Type: Spontaneous
  Country: US (occurrence: US)
  Receive Date: 20200113
  Receipt Date: 20200113
  Transmission Date: 20200409
  Serious: Yes (Other)
  Sender: FDA-Public Use
  Company Number: None

PATIENT
  Age: 33 Year
  Sex: Male
  Weight: 75.8 kg

DRUGS (3)
  1. HUMIRA [Suspect]
     Active Substance: ADALIMUMAB
     Indication: CROHN^S DISEASE
     Dosage: ?          OTHER FREQUENCY:EVERY 2 WEEKS;?
     Route: 058
     Dates: start: 20191003, end: 20200110
  2. PREDNISONE. [Concomitant]
     Active Substance: PREDNISONE
  3. NICOTINE GUM [Concomitant]
     Active Substance: NICOTINE

REACTIONS (6)
  - Pain [None]
  - Musculoskeletal stiffness [None]
  - Demyelination [None]
  - Muscular weakness [None]
  - Coordination abnormal [None]
  - Muscle spasms [None]

NARRATIVE: CASE EVENT DATE: 20200110
